FAERS Safety Report 23555671 (Version 1)
Quarter: 2024Q1

REPORT INFORMATION
  Report Type: Spontaneous
  Country: DE (occurrence: DE)
  Receive Date: 20240222
  Receipt Date: 20240222
  Transmission Date: 20240409
  Serious: Yes (Hospitalization, Other)
  Sender: FDA-Public Use
  Company Number: DE-SANDOZ-SDZ2024DE018156

PATIENT
  Age: 56 Year
  Sex: Female
  Weight: 72 kg

DRUGS (1)
  1. AZITHROMYCIN [Suspect]
     Active Substance: AZITHROMYCIN
     Indication: Ear infection
     Dosage: 500 MG 2 DOSE QD
     Route: 048
     Dates: start: 20240219, end: 20240219

REACTIONS (2)
  - Circulatory collapse [Not Recovered/Not Resolved]
  - Jaundice [Not Recovered/Not Resolved]

NARRATIVE: CASE EVENT DATE: 20240219
